FAERS Safety Report 10098002 (Version 1)
Quarter: 2014Q2

REPORT INFORMATION
  Report Type: Spontaneous
  Country: US (occurrence: US)
  Receive Date: 20140423
  Receipt Date: 20140423
  Transmission Date: 20141212
  Serious: Yes (Hospitalization, Other)
  Sender: FDA-Public Use
  Company Number: US-AMGEN INC.-USASP2014028357

PATIENT
  Age: 54 Year
  Sex: Female

DRUGS (2)
  1. ENBREL [Suspect]
     Indication: RHEUMATOID ARTHRITIS
     Dosage: 50 MG, QWK
     Route: 065
     Dates: start: 19990401
  2. ORENCIA [Concomitant]
     Dosage: UNK
     Dates: start: 2009, end: 2009

REACTIONS (13)
  - Atrial fibrillation [Recovered/Resolved]
  - Back pain [Not Recovered/Not Resolved]
  - Head injury [Not Recovered/Not Resolved]
  - Back injury [Not Recovered/Not Resolved]
  - Bradycardia [Recovered/Resolved]
  - Loss of consciousness [Not Recovered/Not Resolved]
  - Joint stiffness [Not Recovered/Not Resolved]
  - Palpitations [Recovered/Resolved]
  - Pleural effusion [Recovered/Resolved]
  - Dyspnoea [Recovered/Resolved]
  - Asthenia [Recovered/Resolved]
  - Condition aggravated [Not Recovered/Not Resolved]
  - Peripheral swelling [Not Recovered/Not Resolved]
